FAERS Safety Report 8571245-4 (Version None)
Quarter: 2012Q3

REPORT INFORMATION
  Report Type: 
  Country: None (occurrence: None)
  Receive Date: 20120730
  Receipt Date: 20120730
  Transmission Date: 20120928
  Serious: Yes (Hospitalization)
  Sender: FDA-Public Use
  Company Number: None

PATIENT
  Age: 60 Year
  Sex: 0
  Weight: 136.4 kg

DRUGS (1)
  1. NALTREXONE HYDROCHLORIDE [Suspect]
     Dosage: 50 MG  ONCE  PO
     Route: 048
     Dates: start: 20120428, end: 20120428

REACTIONS (9)
  - AGITATION [None]
  - TACHYCARDIA [None]
  - TACHYPNOEA [None]
  - WHITE BLOOD CELL COUNT INCREASED [None]
  - HYPERTENSION [None]
  - PILOERECTION [None]
  - DRUG WITHDRAWAL SYNDROME [None]
  - MYDRIASIS [None]
  - HYPERHIDROSIS [None]
